FAERS Safety Report 5673942-7 (Version None)
Quarter: 2008Q2

REPORT INFORMATION
  Report Type: 
  Country: None (occurrence: None)
  Receive Date: 20080226
  Receipt Date: 20070503
  Transmission Date: 20081010
  Serious: Yes (Hospitalization)
  Sender: FDA-Public Use
  Company Number: DSA_29864_2007

PATIENT
  Sex: Female
  Weight: 65.7716 kg

DRUGS (1)
  1. ENALAPRIL MALEATE [Suspect]
     Indication: DRUG USE FOR UNKNOWN INDICATION
     Dosage: (5 MG QD ORAL)
     Route: 048
     Dates: end: 20060919

REACTIONS (1)
  - LOSS OF CONSCIOUSNESS [None]
